FAERS Safety Report 6590748-5 (Version None)
Quarter: 2010Q1

REPORT INFORMATION
  Report Type: 
  Country: None (occurrence: None)
  Receive Date: 20100219
  Receipt Date: 20100215
  Transmission Date: 20100710
  Serious: Yes (Death)
  Sender: FDA-Public Use
  Company Number: JP-BRISTOL-MYERS SQUIBB COMPANY-14978399

PATIENT
  Age: 66 Year
  Sex: Female
  Weight: 38 kg

DRUGS (2)
  1. CISPLATIN [Suspect]
     Indication: CERVIX CARCINOMA STAGE IV
     Dosage: CYCLE 1 DOSE:66MG ON 17DEC2009
     Route: 042
     Dates: start: 20091217, end: 20100128
  2. S-1 [Suspect]
     Indication: CERVIX CARCINOMA STAGE IV
     Dosage: CYCLE 1: 17DEC2009 TO 21DEC2009 100MG BID
     Route: 048
     Dates: start: 20091217, end: 20100209

REACTIONS (1)
  - MYOCARDIAL INFARCTION [None]
